FAERS Safety Report 14494869 (Version 4)
Quarter: 2018Q4

REPORT INFORMATION
  Report Type: Report from Study
  Country: DE (occurrence: DE)
  Receive Date: 20180206
  Receipt Date: 20181009
  Transmission Date: 20190204
  Serious: Yes (Other)
  Sender: FDA-Public Use
  Company Number: DE-MYLANLABS-2018M1007291

PATIENT
  Age: 81 Year
  Sex: Female
  Weight: 90 kg

DRUGS (7)
  1. L-THYROXIN [Concomitant]
     Active Substance: LEVOTHYROXINE SODIUM
     Indication: GOITRE
     Dosage: 150 OT, QD (1-0-0)
     Route: 065
  2. VELMETIA [Concomitant]
     Active Substance: METFORMIN\SITAGLIPTIN
     Indication: TYPE 2 DIABETES MELLITUS
     Dosage: UNK
     Route: 065
  3. BISOBETA [Concomitant]
     Indication: HYPERTENSION
     Dosage: 10 OT, QD (1-0-0)
     Route: 065
  4. EXJADE [Suspect]
     Active Substance: DEFERASIROX
     Indication: MYELODYSPLASTIC SYNDROME
     Dosage: 2.78 MG/KG, UNK
     Route: 048
     Dates: start: 20160404, end: 20160422
  5. METFORMIN [Suspect]
     Active Substance: METFORMIN HYDROCHLORIDE
     Indication: TYPE 2 DIABETES MELLITUS
     Dosage: 0.5 DF (1/2-0-1/2), BID
     Route: 065
     Dates: end: 20160512
  6. EXJADE [Suspect]
     Active Substance: DEFERASIROX
     Dosage: 2.78 MG/KG, UNK
     Route: 048
     Dates: start: 20160512, end: 20160529
  7. FOLATE [Concomitant]
     Active Substance: FOLATE SODIUM
     Indication: FOLATE DEFICIENCY
     Dosage: 5 MG, QD (1-0-0)
     Route: 065
     Dates: start: 20120123, end: 20160511

REACTIONS (8)
  - Pollakiuria [Recovered/Resolved]
  - Asthenia [Not Recovered/Not Resolved]
  - Wrong technique in product usage process [Unknown]
  - Diarrhoea [Recovered/Resolved]
  - Dizziness [Recovering/Resolving]
  - Platelet count increased [Recovered/Resolved]
  - Product prescribing error [Unknown]
  - Vomiting [Recovered/Resolved]

NARRATIVE: CASE EVENT DATE: 20160422
